FAERS Safety Report 9031701 (Version 1)
Quarter: 2013Q1

REPORT INFORMATION
  Report Type: Spontaneous
  Country: US (occurrence: US)
  Receive Date: 20130124
  Receipt Date: 20130124
  Transmission Date: 20140127
  Serious: Yes (Hospitalization)
  Sender: FDA-Public Use
  Company Number: US-BAYER-2013-008065

PATIENT
  Age: 18 Year
  Sex: Female
  Weight: 52.15 kg

DRUGS (9)
  1. YASMIN [Suspect]
     Indication: ACNE
     Dosage: UNK
     Dates: start: 2006, end: 2008
  2. OCELLA [Suspect]
     Indication: ACNE
     Dosage: UNK
     Dates: start: 2008, end: 2009
  3. SUCRALFATE [Concomitant]
  4. MONODOX [Concomitant]
     Dosage: 75 MG, UNK
  5. AZITHROMYCIN [Concomitant]
     Dosage: 250 MG, UNK
  6. NITROFURANT MACRO [Concomitant]
  7. BELLADONNA AND PHENOBARBITONE [Concomitant]
  8. NYSTATIN [Concomitant]
     Dosage: 500000 U, UNK
     Route: 048
  9. PROMETHAZINE DM [Concomitant]

REACTIONS (3)
  - Biliary dyskinesia [None]
  - Cholecystitis chronic [None]
  - Abdominal pain [None]
